FAERS Safety Report 17578093 (Version 1)
Quarter: 2020Q1

REPORT INFORMATION
  Report Type: Spontaneous
  Country: CA (occurrence: CA)
  Receive Date: 20200324
  Receipt Date: 20200324
  Transmission Date: 20200409
  Serious: Yes (Other)
  Sender: FDA-Public Use
  Company Number: NVSC2020CA078447

PATIENT
  Age: 51 Year
  Sex: Female

DRUGS (8)
  1. LYRICA [Suspect]
     Active Substance: PREGABALIN
     Indication: PRODUCT USED FOR UNKNOWN INDICATION
     Route: 065
  2. AMITRIPTYLINE [Concomitant]
     Active Substance: AMITRIPTYLINE
     Indication: PRODUCT USED FOR UNKNOWN INDICATION
     Route: 065
  3. NAPROXEN SODIUM. [Concomitant]
     Active Substance: NAPROXEN SODIUM
     Indication: PRODUCT USED FOR UNKNOWN INDICATION
     Route: 065
  4. ACETAMINOPHEN. [Concomitant]
     Active Substance: ACETAMINOPHEN
     Indication: DISCOMFORT
     Route: 065
  5. CYANOCOBALAMIN. [Concomitant]
     Active Substance: CYANOCOBALAMIN
     Indication: PRODUCT USED FOR UNKNOWN INDICATION
     Route: 065
  6. CELEBREX [Concomitant]
     Active Substance: CELECOXIB
     Indication: DISCOMFORT
     Route: 065
  7. OMEPRAZOLE. [Concomitant]
     Active Substance: OMEPRAZOLE
     Indication: PRODUCT USED FOR UNKNOWN INDICATION
     Dosage: 30 MG, QD
     Route: 065
  8. SANDOSTATIN [Suspect]
     Active Substance: OCTREOTIDE ACETATE
     Indication: SHORT-BOWEL SYNDROME
     Dosage: 30.0 MG
     Route: 030

REACTIONS (31)
  - Arthralgia [Unknown]
  - Blood potassium decreased [Unknown]
  - Dysgeusia [Unknown]
  - Body temperature decreased [Unknown]
  - Hypoaesthesia [Unknown]
  - Inappropriate schedule of product administration [Unknown]
  - Injection site pain [Unknown]
  - Oedema peripheral [Unknown]
  - Vitamin D decreased [Unknown]
  - Blood glucose decreased [Unknown]
  - Blood magnesium decreased [Unknown]
  - Blood sodium decreased [Unknown]
  - Night sweats [Unknown]
  - Vulval cancer stage I [Unknown]
  - Dyspepsia [Unknown]
  - Inflammation [Unknown]
  - Myalgia [Unknown]
  - Pain [Unknown]
  - Hot flush [Unknown]
  - Insomnia [Unknown]
  - Joint swelling [Unknown]
  - Proctalgia [Unknown]
  - Abdominal pain [Unknown]
  - Blood glucose fluctuation [Unknown]
  - Generalised oedema [Unknown]
  - Heart rate decreased [Unknown]
  - Hypoacusis [Unknown]
  - Injection site swelling [Unknown]
  - Nausea [Unknown]
  - Fatigue [Unknown]
  - Off label use [Unknown]
